FAERS Safety Report 5481410-0 (Version None)
Quarter: 2007Q4

REPORT INFORMATION
  Report Type: 
  Country: None (occurrence: None)
  Receive Date: 20071005
  Receipt Date: 20071005
  Transmission Date: 20080405
  Serious: Yes (Other)
  Sender: FDA-Public Use
  Company Number: None

PATIENT
  Age: 21 Year
  Sex: Female
  Weight: 58.9676 kg

DRUGS (2)
  1. BUDEPRION XL 300 MG TEVA [Suspect]
     Indication: MAJOR DEPRESSION
     Dosage: 300 MG  ONCE A DAY  PO
     Route: 048
     Dates: start: 20070822, end: 20070921
  2. CYMBALTA [Concomitant]

REACTIONS (4)
  - CHEST DISCOMFORT [None]
  - DYSPNOEA [None]
  - TACHYCARDIA [None]
  - WEIGHT INCREASED [None]
